FAERS Safety Report 16144018 (Version 3)
Quarter: 2019Q2

REPORT INFORMATION
  Report Type: Report from Study
  Country: US (occurrence: US)
  Receive Date: 20190401
  Receipt Date: 20190606
  Transmission Date: 20190711
  Serious: Yes (Hospitalization)
  Sender: FDA-Public Use
  Company Number: US-ACTELION-A-US2019-188292

PATIENT
  Age: 58 Year
  Sex: Male

DRUGS (4)
  1. AMLODIPINE [Concomitant]
     Active Substance: AMLODIPINE BESYLATE
  2. ELIQUIS [Concomitant]
     Active Substance: APIXABAN
  3. OPSUMIT [Suspect]
     Active Substance: MACITENTAN
     Indication: PULMONARY ARTERIAL HYPERTENSION
     Dosage: 10 MG, QD
     Route: 048
  4. OXYGEN. [Suspect]
     Active Substance: OXYGEN
     Indication: PRODUCT USED FOR UNKNOWN INDICATION
     Route: 065

REACTIONS (12)
  - Epistaxis [Recovered/Resolved]
  - Fluid retention [Unknown]
  - Unevaluable event [Unknown]
  - Inflammation [Unknown]
  - Vascular device infection [Unknown]
  - Oxygen saturation abnormal [Unknown]
  - Acute respiratory failure [Recovered/Resolved]
  - Dyspnoea [Recovering/Resolving]
  - Blood count abnormal [Unknown]
  - Haemorrhoids [Unknown]
  - Electrocardiogram change [Recovered/Resolved]
  - Swelling [Recovered/Resolved]

NARRATIVE: CASE EVENT DATE: 201902
